FAERS Safety Report 11168461 (Version 2)
Quarter: 2015Q3

REPORT INFORMATION
  Report Type: Spontaneous
  Country: VE (occurrence: VE)
  Receive Date: 20150605
  Receipt Date: 20150904
  Transmission Date: 20151125
  Serious: Yes (Life-Threatening, Hospitalization, Other)
  Sender: FDA-Public Use
  Company Number: VE-GLAXOSMITHKLINE-VE2015GSK077032

PATIENT
  Age: 22 Year
  Sex: Male

DRUGS (4)
  1. LAMICTAL [Suspect]
     Active Substance: LAMOTRIGINE
     Indication: EPILEPSY
     Dosage: 500 MG, QD
     Route: 048
     Dates: start: 20000801, end: 201505
  2. KOPODEX [Suspect]
     Active Substance: LEVETIRACETAM
     Indication: EPILEPSY
     Dosage: UNK
     Route: 048
     Dates: start: 201505
  3. LAMICTAL [Suspect]
     Active Substance: LAMOTRIGINE
     Indication: SEIZURE
  4. KOPODEX [Suspect]
     Active Substance: LEVETIRACETAM
     Indication: SEIZURE

REACTIONS (3)
  - Hypotension [Unknown]
  - Suicide attempt [Unknown]
  - Generalised tonic-clonic seizure [Unknown]

NARRATIVE: CASE EVENT DATE: 20150201
